FAERS Safety Report 7861951-9 (Version None)
Quarter: 2011Q4

REPORT INFORMATION
  Report Type: 
  Country: None (occurrence: None)
  Receive Date: 20111027
  Receipt Date: 20101119
  Transmission Date: 20120403
  Serious: No
  Sender: FDA-Public Use
  Company Number: US-AMGEN-USASP2010005781

PATIENT
  Age: 59 Year
  Sex: Female
  Weight: 62.132 kg

DRUGS (7)
  1. MELOXICAM [Concomitant]
     Dosage: 15 MG, UNK
  2. ATENOLOL [Concomitant]
  3. SULFASALAZINE [Concomitant]
     Dosage: 500 MG, UNK
  4. VITAMIN D [Concomitant]
  5. ENBREL [Suspect]
     Indication: PRODUCT USED FOR UNKNOWN INDICATION
     Dosage: 50 MG, QWK
     Route: 058
  6. FISH OIL [Concomitant]
  7. PROTONIX [Concomitant]
     Dosage: 20 MG, UNK

REACTIONS (3)
  - INJECTION SITE HAEMORRHAGE [None]
  - INJECTION SITE ERYTHEMA [None]
  - INJECTION SITE SWELLING [None]
